FAERS Safety Report 15397979 (Version 1)
Quarter: 2018Q4

REPORT INFORMATION
  Report Type: Spontaneous
  Country: LV (occurrence: LV)
  Receive Date: 20180918
  Receipt Date: 20180918
  Transmission Date: 20190204
  Serious: Yes (Hospitalization)
  Sender: FDA-Public Use
  Company Number: LV-MYLANLABS-2018M1068004

PATIENT
  Age: 28 Year
  Sex: Female

DRUGS (2)
  1. SALBUTAMOL MYLAN [Suspect]
     Active Substance: ALBUTEROL
     Indication: COUGH
     Dosage: 0.1 ?G, 1-2 TIMES PER DAY AS
  2. FLUTICASONE,SALMETEROL MYLAN [Suspect]
     Active Substance: FLUTICASONE PROPIONATE\SALMETEROL XINAFOATE
     Indication: COUGH
     Dosage: 50/ 250 MCG/DOSE BID

REACTIONS (2)
  - Drug ineffective [Unknown]
  - Tuberculosis [Unknown]
